FAERS Safety Report 25174270 (Version 2)
Quarter: 2025Q2

REPORT INFORMATION
  Report Type: Spontaneous
  Country: US (occurrence: US)
  Receive Date: 20250408
  Receipt Date: 20250510
  Transmission Date: 20250717
  Serious: No
  Sender: SANOFI AVENTIS
  Company Number: US-SA-2025SA099177

PATIENT
  Age: 67 Year
  Sex: Female

DRUGS (3)
  1. DUPIXENT [Suspect]
     Active Substance: DUPILUMAB
     Indication: Dermatitis atopic
     Route: 058
     Dates: start: 20231018, end: 20231018
  2. DUPIXENT [Suspect]
     Active Substance: DUPILUMAB
     Dosage: 300 MG, QOW
     Route: 058
     Dates: start: 20241101, end: 202501
  3. TRETINOIN [Concomitant]
     Active Substance: TRETINOIN
     Dosage: UNK UNK, HS

REACTIONS (4)
  - Pain [Recovered/Resolved]
  - Impaired quality of life [Unknown]
  - Myalgia [Unknown]
  - Arthralgia [Unknown]
